FAERS Safety Report 5765989-7 (Version None)
Quarter: 2008Q2

REPORT INFORMATION
  Report Type: 
  Country: None (occurrence: None)
  Receive Date: 20080611
  Receipt Date: 20080414
  Transmission Date: 20081010
  Serious: No
  Sender: FDA-Public Use
  Company Number: US-BRISTOL-MYERS SQUIBB COMPANY-14149892

PATIENT
  Age: 74 Year
  Sex: Female
  Weight: 87 kg

DRUGS (3)
  1. SINEMET [Suspect]
     Indication: PARKINSON'S DISEASE
     Dosage: 1 DOSAGE FORM = 25/100 MG.
     Dates: start: 20010101
  2. METFORMIN HCL [Concomitant]
  3. LISINOPRIL [Concomitant]

REACTIONS (2)
  - GASTROINTESTINAL PAIN [None]
  - SENSORY DISTURBANCE [None]
